FAERS Safety Report 16064311 (Version 1)
Quarter: 2019Q1

REPORT INFORMATION
  Report Type: Spontaneous
  Country: GB (occurrence: GB)
  Receive Date: 20190312
  Receipt Date: 20190312
  Transmission Date: 20190418
  Serious: Yes (Hospitalization)
  Sender: FDA-Public Use
  Company Number: GB-TAKEDA-2019TUS013421

PATIENT
  Age: 33 Year
  Sex: Male
  Weight: 52 kg

DRUGS (5)
  1. STELARA [Suspect]
     Active Substance: USTEKINUMAB
     Indication: CROHN^S DISEASE
     Dosage: 90 MILLIGRAM, Q8WEEKS
     Route: 058
     Dates: start: 20180312
  2. PREDNISOLONE. [Concomitant]
     Active Substance: PREDNISOLONE
     Indication: CROHN^S DISEASE
     Dosage: 10 MILLIGRAM
     Route: 065
     Dates: start: 20151223
  3. ENTYVIO [Suspect]
     Active Substance: VEDOLIZUMAB
     Indication: CROHN^S DISEASE
     Dosage: UNK
     Route: 065
  4. OMEPRAZOLE. [Concomitant]
     Active Substance: OMEPRAZOLE
     Indication: GASTROINTESTINAL DISORDER THERAPY
     Dosage: 20 MILLIGRAM, QD
     Route: 048
     Dates: start: 20181224
  5. CALCIUM D3                         /00944201/ [Concomitant]
     Active Substance: CALCIUM CARBONATE\CHOLECALCIFEROL
     Indication: PROPHYLAXIS
     Dosage: UNK UNK, QD
     Route: 048
     Dates: start: 20181224

REACTIONS (5)
  - Anal abscess [Recovered/Resolved]
  - Groin abscess [Not Recovered/Not Resolved]
  - Crohn^s disease [Recovering/Resolving]
  - Fistula [Unknown]
  - Perineal abscess [Unknown]

NARRATIVE: CASE EVENT DATE: 2018
